FAERS Safety Report 7549169-0 (Version None)
Quarter: 2011Q2

REPORT INFORMATION
  Report Type: 
  Country: None (occurrence: None)
  Receive Date: 20110615
  Receipt Date: 20110602
  Transmission Date: 20111010
  Serious: Yes (Other)
  Sender: FDA-Public Use
  Company Number: PHHY2011US49579

PATIENT
  Sex: Female

DRUGS (3)
  1. FOSAMAX [Concomitant]
  2. PERCOCET [Suspect]
     Dosage: UNK
  3. EXJADE [Suspect]
     Dosage: 1500 MG, QD
     Route: 048

REACTIONS (1)
  - SKIN EXFOLIATION [None]
